FAERS Safety Report 19579757 (Version 2)
Quarter: 2021Q3

REPORT INFORMATION
  Report Type: Spontaneous
  Country: CA (occurrence: CA)
  Receive Date: 20210720
  Receipt Date: 20210804
  Transmission Date: 20211014
  Serious: Yes (Other)
  Sender: FDA-Public Use
  Company Number: CA-AMGEN-CANSP2021108281

PATIENT
  Age: 54 Year
  Sex: Female

DRUGS (5)
  1. NEUPOGEN [Suspect]
     Active Substance: FILGRASTIM
     Dosage: 300 MICROGRAM, 3 TIMES/WK (THREE CONSECUTIVE DOSES)
     Route: 065
  2. NEUPOGEN [Suspect]
     Active Substance: FILGRASTIM
     Dosage: 300 MICROGRAM, 3 TIMES/WK (1 DOSE)
     Route: 065
  3. NEUPOGEN [Suspect]
     Active Substance: FILGRASTIM
     Indication: NEUTROPENIA
     Dosage: 300 MICROGRAM, 3 TIMES/WK (THREE CONSECUTIVE DOSES)
     Route: 065
  4. NEUPOGEN [Suspect]
     Active Substance: FILGRASTIM
     Indication: OFF LABEL USE
     Dosage: 300 MICROGRAM, 3 TIMES/WK (THREE CONSECUTIVE DOSES)
     Route: 065
  5. CLOZAPINE. [Concomitant]
     Active Substance: CLOZAPINE
     Dosage: UNK

REACTIONS (4)
  - Psychotic disorder [Unknown]
  - Off label use [Unknown]
  - Hepatitis [Unknown]
  - Neutropenia [Unknown]
